FAERS Safety Report 8196209-4 (Version None)
Quarter: 2012Q1

REPORT INFORMATION
  Report Type: 
  Country: None (occurrence: None)
  Receive Date: 20120307
  Receipt Date: 20120307
  Transmission Date: 20120608
  Serious: No
  Sender: FDA-Public Use
  Company Number: None

PATIENT
  Sex: Male
  Weight: 72.5755 kg

DRUGS (2)
  1. PANTOPRAZOLE [Suspect]
     Indication: GASTROOESOPHAGEAL REFLUX DISEASE
     Dates: end: 20110524
  2. PANTOPRAZOLE [Suspect]
     Indication: PEPTIC ULCER
     Dates: end: 20110524

REACTIONS (5)
  - ULCER [None]
  - DISEASE RECURRENCE [None]
  - PRODUCT SUBSTITUTION ISSUE [None]
  - GASTROOESOPHAGEAL REFLUX DISEASE [None]
  - COUGH [None]
